FAERS Safety Report 9369685 (Version 1)
Quarter: 2013Q2

REPORT INFORMATION
  Report Type: Spontaneous
  Country: FR (occurrence: FR)
  Receive Date: 20130626
  Receipt Date: 20130626
  Transmission Date: 20140414
  Serious: Yes (Other)
  Sender: FDA-Public Use
  Company Number: FR-ABBOTT-13P-056-1105847-00

PATIENT
  Sex: Female

DRUGS (1)
  1. PROGESTAN [Suspect]
     Indication: MENOPAUSE
     Dosage: IN THE MORNING SINCE A LONG TIME
     Route: 048

REACTIONS (3)
  - Sensory disturbance [Recovered/Resolved]
  - Somnolence [Recovered/Resolved]
  - Wrong technique in drug usage process [Unknown]
